FAERS Safety Report 22895037 (Version 2)
Quarter: 2024Q3

REPORT INFORMATION
  Report Type: Report from Study
  Country: US (occurrence: US)
  Receive Date: 20230901
  Receipt Date: 20240910
  Transmission Date: 20241017
  Serious: Yes (Hospitalization)
  Sender: NOVARTIS
  Company Number: US-002147023-NVSC2023US188386

PATIENT
  Sex: Male

DRUGS (1)
  1. ENTRESTO [Suspect]
     Active Substance: SACUBITRIL\VALSARTAN
     Indication: Product used for unknown indication
     Dosage: UNK UNK, BID
     Route: 048

REACTIONS (6)
  - COVID-19 [Unknown]
  - Amnesia [Unknown]
  - Hypersomnia [Unknown]
  - Cardiac disorder [Recovering/Resolving]
  - Fatigue [Unknown]
  - Concomitant disease aggravated [Unknown]
